FAERS Safety Report 11667606 (Version 4)
Quarter: 2016Q1

REPORT INFORMATION
  Report Type: Spontaneous
  Country: CA (occurrence: CA)
  Receive Date: 20151027
  Receipt Date: 20160311
  Transmission Date: 20160525
  Serious: Yes (Other)
  Sender: FDA-Public Use
  Company Number: CA-GALDERMA-CA15007461

PATIENT
  Age: 37 Year
  Sex: Female

DRUGS (1)
  1. ONRELTEA [Suspect]
     Active Substance: BRIMONIDINE TARTRATE
     Indication: ERYTHEMA
     Dosage: 0.33%
     Route: 061
     Dates: start: 201508, end: 201508

REACTIONS (19)
  - Insomnia [Unknown]
  - Dizziness [Unknown]
  - Nerve injury [Unknown]
  - Pain of skin [Unknown]
  - Suicidal ideation [Recovering/Resolving]
  - Neuralgia [Unknown]
  - Hypoaesthesia [Not Recovered/Not Resolved]
  - Anaemia [Unknown]
  - Walking disability [Unknown]
  - Flushing [Not Recovered/Not Resolved]
  - Activities of daily living impaired [Unknown]
  - Impaired driving ability [Unknown]
  - Altered visual depth perception [Unknown]
  - Skin warm [Unknown]
  - Angiopathy [Unknown]
  - Emotional distress [Unknown]
  - Crying [Unknown]
  - Decreased appetite [Not Recovered/Not Resolved]
  - Weight decreased [Unknown]

NARRATIVE: CASE EVENT DATE: 201508
